FAERS Safety Report 25244487 (Version 1)
Quarter: 2025Q2

REPORT INFORMATION
  Report Type: Spontaneous
  Country: CN (occurrence: CN)
  Receive Date: 20250428
  Receipt Date: 20250428
  Transmission Date: 20250716
  Serious: Yes (Other)
  Sender: ALKEM
  Company Number: CN-ALKEM LABORATORIES LIMITED-CN-ALKEM-2024-20960

PATIENT
  Age: 7 Month
  Sex: Female

DRUGS (2)
  1. SIROLIMUS [Suspect]
     Active Substance: SIROLIMUS
     Indication: Juvenile polyposis syndrome
     Dosage: 0.4 MILLIGRAM, BID (COMMENCED TREATMENT WITH SIROLIMUS AT AN INITIAL DOSE OF 1.5 MG/M2 PER DAY)
     Route: 065
  2. SIROLIMUS [Suspect]
     Active Substance: SIROLIMUS
     Route: 065

REACTIONS (1)
  - Pneumonia [Unknown]
